FAERS Safety Report 15191424 (Version 1)
Quarter: 2018Q3

REPORT INFORMATION
  Report Type: Report from Study
  Country: US (occurrence: US)
  Receive Date: 20180724
  Receipt Date: 20180724
  Transmission Date: 20181010
  Serious: No
  Sender: FDA-Public Use
  Company Number: US-AMGEN-USASL2018051574

PATIENT
  Age: 65 Year
  Sex: Male

DRUGS (3)
  1. KYPROLIS [Suspect]
     Active Substance: CARFILZOMIB
     Indication: MALIGNANT PERITONEAL NEOPLASM
  2. KYPROLIS [Suspect]
     Active Substance: CARFILZOMIB
     Indication: RETROPERITONEAL CANCER
  3. KYPROLIS [Suspect]
     Active Substance: CARFILZOMIB
     Indication: PROSTATE CANCER
     Dosage: UNK
     Route: 065

REACTIONS (1)
  - Off label use [Unknown]
